FAERS Safety Report 15160231 (Version 2)
Quarter: 2018Q3

REPORT INFORMATION
  Report Type: Spontaneous
  Country: FR (occurrence: FR)
  Receive Date: 20180718
  Receipt Date: 20180725
  Transmission Date: 20181010
  Serious: Yes (Hospitalization, Other)
  Sender: FDA-Public Use
  Company Number: FR-FERRINGPH-2018FE02925

PATIENT

DRUGS (23)
  1. ZANIDIP [Concomitant]
     Active Substance: LERCANIDIPINE HYDROCHLORIDE
     Indication: PRODUCT USED FOR UNKNOWN INDICATION
     Route: 065
  2. HYPERIUM [Concomitant]
     Active Substance: RILMENIDINE PHOSPHATE
     Indication: PRODUCT USED FOR UNKNOWN INDICATION
     Dosage: 2 TIMES DAILY, IN THE MORNING AND IN THE EVENING
     Route: 065
  3. NOVONORM [Concomitant]
     Active Substance: REPAGLINIDE
     Indication: PRODUCT USED FOR UNKNOWN INDICATION
     Dosage: AT LUNCHTIME AND IN THE EVENING
     Route: 065
  4. CRESTOR [Concomitant]
     Active Substance: ROSUVASTATIN CALCIUM
     Indication: PRODUCT USED FOR UNKNOWN INDICATION
     Route: 065
  5. LASILIX                            /00032601/ [Concomitant]
     Active Substance: FUROSEMIDE
     Indication: PRODUCT USED FOR UNKNOWN INDICATION
     Dosage: 1 DF IN THE MORNING AND ? AT LUNCHTIME
     Route: 065
  6. TADENAN [Concomitant]
     Active Substance: PYGEUM
     Indication: PRODUCT USED FOR UNKNOWN INDICATION
     Dosage: 2 DF, DAILY, 1 CAPSULE IN THE MORNING AND IN THE EVENING
     Route: 065
  7. BISOCE [Concomitant]
     Active Substance: BISOPROLOL
     Indication: PRODUCT USED FOR UNKNOWN INDICATION
     Dosage: 1 TABLET IN THE MORNING
     Route: 065
  8. EUPANTOL [Concomitant]
     Active Substance: PANTOPRAZOLE SODIUM
     Indication: PRODUCT USED FOR UNKNOWN INDICATION
     Dosage: 1 TABLET IN THE EVENING
     Route: 065
  9. JANUVIA [Concomitant]
     Active Substance: SITAGLIPTIN PHOSPHATE
     Indication: PRODUCT USED FOR UNKNOWN INDICATION
     Dosage: 1 TABLET IN THE MORNING
     Route: 065
  10. FIRMAGON [Suspect]
     Active Substance: DEGARELIX ACETATE
     Indication: PROSTATE CANCER METASTATIC
     Dosage: 80 MG, MONTHLY
     Route: 058
     Dates: start: 201708
  11. GALVUS [Concomitant]
     Active Substance: VILDAGLIPTIN
     Indication: PRODUCT USED FOR UNKNOWN INDICATION
     Dosage: IN THE MORNING
     Route: 065
  12. OMEPRAZOLE. [Concomitant]
     Active Substance: OMEPRAZOLE
     Indication: PRODUCT USED FOR UNKNOWN INDICATION
     Route: 065
  13. PREVISCAN                          /00261401/ [Concomitant]
     Active Substance: PENTOXIFYLLINE
     Indication: PRODUCT USED FOR UNKNOWN INDICATION
     Dosage: 1 TABLET IN THE EVENING
     Route: 065
  14. REPAGLINIDE ARROW [Concomitant]
     Active Substance: REPAGLINIDE
     Indication: PRODUCT USED FOR UNKNOWN INDICATION
     Dosage: 1 TABLET IN THE MORNING AND IN THE EVENING
     Route: 065
  15. ZYLORIC [Concomitant]
     Active Substance: ALLOPURINOL
     Indication: PRODUCT USED FOR UNKNOWN INDICATION
     Dosage: 1 TABLET IN THE MORNING
     Route: 065
  16. DUOPLAVIN [Concomitant]
     Active Substance: ASPIRIN\CLOPIDOGREL
     Indication: PRODUCT USED FOR UNKNOWN INDICATION
     Dosage: 1 TABLET IN THE MORNING
     Route: 065
  17. LASILIX SPECIAL                    /00032601/ [Concomitant]
     Active Substance: FUROSEMIDE
     Indication: PRODUCT USED FOR UNKNOWN INDICATION
     Dosage: 1 TABLET IN THE MORNING
     Route: 065
  18. LOXEN L P [Concomitant]
     Active Substance: NICARDIPINE HYDROCHLORIDE
     Indication: PRODUCT USED FOR UNKNOWN INDICATION
     Dosage: 1 CAPSULE IN THE MORNING AND IN THE EVENING
     Route: 065
  19. ALLOPURINOL. [Concomitant]
     Active Substance: ALLOPURINOL
     Indication: PRODUCT USED FOR UNKNOWN INDICATION
     Route: 065
  20. KARDEGIC [Concomitant]
     Active Substance: ASPIRIN DL-LYSINE
     Indication: PRODUCT USED FOR UNKNOWN INDICATION
     Route: 065
  21. CORVASAL                           /00547101/ [Concomitant]
     Active Substance: MOLSIDOMINE
     Indication: PRODUCT USED FOR UNKNOWN INDICATION
     Dosage: 2 DF, DAILY, 1 TABLET IN THE MORNING AND IN THE EVENING
     Route: 065
  22. TENORMINE [Concomitant]
     Active Substance: ATENOLOL
     Indication: PRODUCT USED FOR UNKNOWN INDICATION
     Dosage: 0.5 DF, DAILY
     Route: 065
  23. TAHOR [Concomitant]
     Active Substance: ATORVASTATIN CALCIUM
     Indication: PRODUCT USED FOR UNKNOWN INDICATION
     Dosage: 1 TABLET IN THE EVENING
     Route: 065

REACTIONS (22)
  - Gait disturbance [Recovered/Resolved]
  - Acute pulmonary oedema [Unknown]
  - Musculoskeletal discomfort [Recovered/Resolved]
  - Tremor [Recovered/Resolved]
  - Oedema peripheral [Unknown]
  - Musculoskeletal pain [Recovered/Resolved]
  - Gait inability [Recovered/Resolved]
  - Gait inability [Recovered/Resolved]
  - Paralysis [Recovered/Resolved]
  - Arrhythmia [Unknown]
  - Musculoskeletal discomfort [Recovered/Resolved]
  - Cardiac arrest [Recovered/Resolved]
  - Tremor [Recovered/Resolved]
  - Atrial fibrillation [Unknown]
  - Atrioventricular block second degree [Unknown]
  - Musculoskeletal pain [Recovered/Resolved]
  - Muscular weakness [Recovered/Resolved]
  - Muscular weakness [Recovered/Resolved]
  - Musculoskeletal disorder [Recovered/Resolved]
  - Musculoskeletal disorder [Recovered/Resolved]
  - Gait disturbance [Recovered/Resolved]
  - Paralysis [Recovered/Resolved]

NARRATIVE: CASE EVENT DATE: 201805
